FAERS Safety Report 13923572 (Version 1)
Quarter: 2017Q3

REPORT INFORMATION
  Report Type: Spontaneous
  Country: US (occurrence: US)
  Receive Date: 20170830
  Receipt Date: 20170830
  Transmission Date: 20171127
  Serious: Yes (Hospitalization)
  Sender: FDA-Public Use
  Company Number: None

PATIENT
  Age: 71 Year
  Sex: Female
  Weight: 67.73 kg

DRUGS (1)
  1. KEYTRUDA [Suspect]
     Active Substance: PEMBROLIZUMAB
     Indication: COLON CANCER
     Route: 042
     Dates: start: 20170622, end: 20170824

REACTIONS (13)
  - Myalgia [None]
  - Seizure like phenomena [None]
  - Myoclonus [None]
  - Aura [None]
  - Chills [None]
  - Dystonia [None]
  - Tonic convulsion [None]
  - Seizure [None]
  - Muscle spasms [None]
  - Influenza like illness [None]
  - Headache [None]
  - Vision blurred [None]
  - Abdominal pain [None]

NARRATIVE: CASE EVENT DATE: 20170824
